FAERS Safety Report 9165378 (Version 2)
Quarter: 2013Q1

REPORT INFORMATION
  Report Type: Spontaneous
  Country: VE (occurrence: VE)
  Receive Date: 20130315
  Receipt Date: 20130322
  Transmission Date: 20140127
  Serious: Yes (Death, Other)
  Sender: FDA-Public Use
  Company Number: VE-PFIZER INC-2013087398

PATIENT
  Age: 92 Year
  Sex: Female

DRUGS (3)
  1. CADUET [Suspect]
     Indication: HYPERTENSION
     Dosage: AMLODIPINE 5 MG/ ATORVASTATIN 40 MG, 1X/DAY
     Dates: start: 2009
  2. CADUET [Suspect]
     Indication: FLUID RETENTION
  3. PLAVIX [Concomitant]
     Dosage: 75 MG, 1X/DAY
     Route: 048
     Dates: start: 2009, end: 20130226

REACTIONS (6)
  - Respiratory arrest [Fatal]
  - Cardiac failure [Not Recovered/Not Resolved]
  - Fall [Recovered/Resolved]
  - Hip fracture [Not Recovered/Not Resolved]
  - Cardiac disorder [Not Recovered/Not Resolved]
  - Dyspnoea [Not Recovered/Not Resolved]
